FAERS Safety Report 7456617-3 (Version None)
Quarter: 2011Q2

REPORT INFORMATION
  Report Type: 
  Country: None (occurrence: None)
  Receive Date: 20110503
  Receipt Date: 20110419
  Transmission Date: 20111010
  Serious: Yes (Hospitalization)
  Sender: FDA-Public Use
  Company Number: PHHY2011IR33166

PATIENT
  Age: 29 Year
  Sex: Female

DRUGS (1)
  1. LETROZOLE [Suspect]

REACTIONS (9)
  - VAGINAL HAEMORRHAGE [None]
  - HEART RATE INCREASED [None]
  - UTERINE CERVICAL PAIN [None]
  - PELVIC PAIN [None]
  - FALLOPIAN TUBE DISORDER [None]
  - ABDOMINAL TENDERNESS [None]
  - BLOOD PRESSURE DECREASED [None]
  - BENIGN HYDATIDIFORM MOLE [None]
  - THROMBOSIS [None]
